FAERS Safety Report 14431546 (Version 1)
Quarter: 2018Q1

REPORT INFORMATION
  Report Type: Spontaneous
  Country: DE (occurrence: DE)
  Receive Date: 20180124
  Receipt Date: 20180124
  Transmission Date: 20180509
  Serious: Yes (Other)
  Sender: FDA-Public Use
  Company Number: DE-BRISTOL-MYERS SQUIBB COMPANY-BMS-2017-119038

PATIENT
  Sex: Male

DRUGS (2)
  1. ORENCIA [Suspect]
     Active Substance: ABATACEPT
     Indication: RHEUMATOID ARTHRITIS
     Dosage: UNK
     Route: 065
  2. CORTISONE [Suspect]
     Active Substance: CORTISONE\HYDROCORTISONE
     Indication: RHEUMATOID ARTHRITIS
     Dosage: 7.5 MG, UNK
     Route: 065

REACTIONS (11)
  - Nasopharyngitis [Unknown]
  - Rhinitis [Unknown]
  - Bronchitis [Unknown]
  - Gastrointestinal disorder [Recovered/Resolved]
  - Adverse event [Unknown]
  - Neck pain [Not Recovered/Not Resolved]
  - Migraine [Recovered/Resolved]
  - Vomiting [Unknown]
  - Immunodeficiency [Unknown]
  - Subclavian steal syndrome [Unknown]
  - Epididymitis [Unknown]
